FAERS Safety Report 21002674 (Version 1)
Quarter: 2022Q2

REPORT INFORMATION
  Report Type: Spontaneous
  Country: US (occurrence: US)
  Receive Date: 20220624
  Receipt Date: 20220624
  Transmission Date: 20220721
  Serious: No
  Sender: FDA-Public Use
  Company Number: US-BioHaven Pharmaceuticals-2022BHV001419

PATIENT
  Age: 37 Year

DRUGS (2)
  1. NURTEC ODT [Suspect]
     Active Substance: RIMEGEPANT SULFATE
     Indication: Product used for unknown indication
     Dosage: CALLER STATED THAT THE ACTUAL DISCONTINUE DATE IS UNKNOWN.
     Route: 065
     Dates: end: 20220428
  2. EMGALITY [Concomitant]
     Active Substance: GALCANEZUMAB-GNLM
     Indication: Product used for unknown indication
     Dosage: CALLER STATED THAT THE ACTUAL DISCONTINUE DATE IS UNKNOWN.
     Route: 065

REACTIONS (1)
  - Drug ineffective [Unknown]
